FAERS Safety Report 8603506-4 (Version None)
Quarter: 2012Q3

REPORT INFORMATION
  Report Type: 
  Country: None (occurrence: None)
  Receive Date: 20120817
  Receipt Date: 20120807
  Transmission Date: 20120928
  Serious: Yes (Other)
  Sender: FDA-Public Use
  Company Number: CN-B.I. PHARMACEUTICALS,INC./RIDGEFIELD-2012-BP-19339BP

PATIENT
  Sex: Female
  Weight: 55 kg

DRUGS (1)
  1. MELOXICAM [Suspect]
     Indication: RHEUMATOID ARTHRITIS
     Dosage: 15 MG
     Route: 048
     Dates: start: 20090401, end: 20090403

REACTIONS (1)
  - RENAL IMPAIRMENT [None]
